FAERS Safety Report 7934525-9 (Version None)
Quarter: 2011Q4

REPORT INFORMATION
  Report Type: 
  Country: None (occurrence: None)
  Receive Date: 20111122
  Receipt Date: 20111109
  Transmission Date: 20120403
  Serious: Yes (Hospitalization)
  Sender: FDA-Public Use
  Company Number: US-ROCHE-1011943

PATIENT
  Sex: Male

DRUGS (1)
  1. ZELBORAF [Suspect]
     Indication: METASTATIC MALIGNANT MELANOMA

REACTIONS (3)
  - RESPIRATORY FAILURE [None]
  - DYSPHAGIA [None]
  - HYPOXIA [None]
